FAERS Safety Report 9713713 (Version 1)
Quarter: 2013Q4

REPORT INFORMATION
  Report Type: Spontaneous
  Country: US (occurrence: US)
  Receive Date: 20131126
  Receipt Date: 20131126
  Transmission Date: 20140711
  Serious: Yes (Death)
  Sender: FDA-Public Use
  Company Number: US-BRISTOL-MYERS SQUIBB COMPANY-19859412

PATIENT
  Sex: Female

DRUGS (1)
  1. COUMADIN [Suspect]

REACTIONS (1)
  - Death [Fatal]
